FAERS Safety Report 7624696-6 (Version None)
Quarter: 2011Q3

REPORT INFORMATION
  Report Type: 
  Country: None (occurrence: None)
  Receive Date: 20110720
  Receipt Date: 20110714
  Transmission Date: 20111222
  Serious: Yes (Other)
  Sender: FDA-Public Use
  Company Number: CN-BAYER-2011-047684

PATIENT
  Age: 39 Year
  Sex: Female

DRUGS (1)
  1. MIRENA [Suspect]
     Indication: ADENOMYOSIS
     Dosage: 20 ?G, CONT
     Route: 015
     Dates: start: 20110526

REACTIONS (2)
  - DEVICE DISLOCATION [None]
  - METRORRHAGIA [None]
